FAERS Safety Report 24372845 (Version 7)
Quarter: 2024Q4

REPORT INFORMATION
  Report Type: Spontaneous
  Country: US (occurrence: US)
  Receive Date: 20240927
  Receipt Date: 20241220
  Transmission Date: 20250115
  Serious: Yes (Other)
  Sender: IPSEN BIOPHARMACEUTICALS, INC.
  Company Number: US-IPSEN Group, Research and Development-2024-18970

PATIENT
  Age: 73 Year
  Sex: Female
  Weight: 110 kg

DRUGS (24)
  1. IQIRVO [Suspect]
     Active Substance: ELAFIBRANOR
     Indication: Primary biliary cholangitis
     Dosage: 80 MG DAILY BEFORE BREAKFAST
     Route: 048
     Dates: start: 20240822
  2. IQIRVO [Suspect]
     Active Substance: ELAFIBRANOR
     Dosage: 80 MG DAILY BEFORE BREAKFAST
     Route: 048
     Dates: start: 20240829
  3. OCALIVA [Concomitant]
     Active Substance: OBETICHOLIC ACID
     Dosage: 5 MG DAILY
     Route: 048
  4. OCALIVA [Concomitant]
     Active Substance: OBETICHOLIC ACID
  5. MELATONIN [Concomitant]
     Active Substance: MELATONIN
     Dosage: 10 MG NIGHTLY AS NEEDED
     Route: 048
  6. MELATONIN [Concomitant]
     Active Substance: MELATONIN
  7. TYLENOL [Concomitant]
     Active Substance: ACETAMINOPHEN
     Indication: Pain
     Dosage: 1 TABLET (650 MG) CR TABLET AS NEEDED EVERY 8 HOURS
     Route: 048
  8. TYLENOL [Concomitant]
     Active Substance: ACETAMINOPHEN
  9. VITAMIN D3 [Concomitant]
     Active Substance: CHOLECALCIFEROL
     Dosage: 5 TABLETS (5000 UNITS) DAILY
     Route: 048
  10. VITAMIN D3 [Concomitant]
     Active Substance: CHOLECALCIFEROL
  11. LEVOTHYROXINE [Concomitant]
     Active Substance: LEVOTHYROXINE
     Dosage: 50 MCG DAILY
     Route: 048
  12. ZOCOR [Concomitant]
     Active Substance: SIMVASTATIN
     Dosage: 20 MG DAILY AT NIGHT
     Route: 048
  13. NORVASC [Concomitant]
     Active Substance: AMLODIPINE BESYLATE
     Dosage: 5 MG EVERY NIGHT
     Route: 048
  14. TENORMIN [Concomitant]
     Active Substance: ATENOLOL
     Dosage: 50 MG DAILY
     Route: 048
  15. DIOVAN HCT [Concomitant]
     Active Substance: HYDROCHLOROTHIAZIDE\VALSARTAN
     Dosage: 320-12.5 MG 1 TABLET DAILY
     Route: 048
  16. ARIMIDEX [Concomitant]
     Active Substance: ANASTROZOLE
     Dosage: 1 MG DAILY
     Route: 048
  17. PROTONIX [Concomitant]
     Active Substance: PANTOPRAZOLE SODIUM
     Dosage: 40 MG DAILY GRANPKT DR
     Route: 048
  18. VITAMINS [Concomitant]
     Active Substance: VITAMINS
     Dosage: 1 TABLET DAILY
     Route: 048
  19. CALCIUM 600 + MINERALS [Concomitant]
     Dosage: FREQUENCY: DAILY
  20. SIMVASTATIN [Concomitant]
     Active Substance: SIMVASTATIN
     Dosage: FREQUENCY: DAILY
  21. AMLODIPINE BESYLATE [Concomitant]
     Active Substance: AMLODIPINE BESYLATE
     Dosage: FREQUENCY: DAILY
  22. ATENOLOL [Concomitant]
     Active Substance: ATENOLOL
     Dosage: FREQUENCY: DAILY
  23. HYDROCHLOROTHIAZIDE\VALSARTAN [Concomitant]
     Active Substance: HYDROCHLOROTHIAZIDE\VALSARTAN
     Dosage: FREQUENCY: DAILY
  24. ANASTROZOLE [Concomitant]
     Active Substance: ANASTROZOLE
     Dosage: FREQUENCY: DAILY

REACTIONS (3)
  - Diverticulitis [Not Recovered/Not Resolved]
  - Arthralgia [Recovering/Resolving]
  - Headache [Unknown]

NARRATIVE: CASE EVENT DATE: 20241113
